FAERS Safety Report 14698364 (Version 2)
Quarter: 2018Q2

REPORT INFORMATION
  Report Type: Spontaneous
  Country: GB (occurrence: GB)
  Receive Date: 20180330
  Receipt Date: 20180516
  Transmission Date: 20180711
  Serious: Yes (Disabling)
  Sender: FDA-Public Use
  Company Number: GB-009507513-1803GBR009794

PATIENT
  Age: 71 Year
  Sex: Female

DRUGS (8)
  1. ZAPAIN [Suspect]
     Active Substance: ACETAMINOPHEN\CODEINE PHOSPHATE
  2. SIMVASTATIN. [Suspect]
     Active Substance: SIMVASTATIN
  3. PROPRANOLOL [Suspect]
     Active Substance: PROPRANOLOL HYDROCHLORIDE
  4. QUININE SULFATE. [Suspect]
     Active Substance: QUININE SULFATE
  5. RAMIPRIL. [Suspect]
     Active Substance: RAMIPRIL
  6. MADOPAR [Suspect]
     Active Substance: BENSERAZIDE HYDROCHLORIDE\LEVODOPA
  7. DITROPAN [Suspect]
     Active Substance: OXYBUTYNIN CHLORIDE
  8. NEUPRO [Concomitant]
     Active Substance: ROTIGOTINE
     Dosage: 3 MG, QD
     Route: 062

REACTIONS (2)
  - Dry mouth [Unknown]
  - Tooth loss [Not Recovered/Not Resolved]

NARRATIVE: CASE EVENT DATE: 2017
